FAERS Safety Report 5573819-1 (Version None)
Quarter: 2007Q4

REPORT INFORMATION
  Report Type: 
  Country: None (occurrence: None)
  Receive Date: 20071226
  Receipt Date: 20071214
  Transmission Date: 20080405
  Serious: Yes (Hospitalization)
  Sender: FDA-Public Use
  Company Number: DE-PFIZER INC-2007102269

PATIENT
  Sex: Male
  Weight: 69 kg

DRUGS (1)
  1. SU-011,248 [Suspect]
     Indication: METASTATIC GASTRIC CANCER
     Dosage: DAILY DOSE:50MG
     Route: 048
     Dates: start: 20071120, end: 20071130

REACTIONS (3)
  - ILEUS [None]
  - NAUSEA [None]
  - VOMITING [None]
